FAERS Safety Report 21127125 (Version 1)
Quarter: 2022Q3

REPORT INFORMATION
  Report Type: Spontaneous
  Country: US (occurrence: None)
  Receive Date: 20220725
  Receipt Date: 20220725
  Transmission Date: 20221027
  Serious: Yes (Disabling)
  Sender: FDA-Public Use
  Company Number: None

PATIENT
  Age: 72 Year
  Sex: Female
  Weight: 59.85 kg

DRUGS (21)
  1. HYDRALAZINE [Suspect]
     Active Substance: HYDRALAZINE HYDROCHLORIDE
     Indication: Hypertension
     Dosage: FREQUENCY : 3 TIMES A DAY;?
     Route: 048
     Dates: start: 20120101, end: 20220624
  2. DILTIAZEM [Concomitant]
     Active Substance: DILTIAZEM
  3. CARVEDILOL [Concomitant]
     Active Substance: CARVEDILOL
  4. UNSPECIFIED INGREDIENT [Concomitant]
     Active Substance: UNSPECIFIED INGREDIENT
  5. VITAMIN D3 [Concomitant]
     Active Substance: CHOLECALCIFEROL
  6. VITAMIN C [Concomitant]
     Active Substance: ASCORBIC ACID
  7. PROBIOTICS NOS [Concomitant]
     Active Substance: PROBIOTICS NOS
  8. POTASSIUM CITRATE [Concomitant]
     Active Substance: POTASSIUM CITRATE
  9. ZINC [Concomitant]
     Active Substance: ZINC
  10. DEXPANTHENOL\NIACINAMIDE\PYRIDOXINE HYDROCHLORIDE\RIBOFLAVIN 5^-PHOSPH [Concomitant]
     Active Substance: DEXPANTHENOL\NIACINAMIDE\PYRIDOXINE HYDROCHLORIDE\RIBOFLAVIN 5^-PHOSPHATE SODIUM\THIAMINE HYDROCHLOR
  11. SELENIUM [Concomitant]
     Active Substance: SELENIUM
  12. MAGNESIUM [Concomitant]
     Active Substance: MAGNESIUM
  13. OMEGA 3 [Concomitant]
     Active Substance: CAPSAICIN
  14. VITAMIN A [Concomitant]
     Active Substance: VITAMIN A
  15. Liver cleanse [Concomitant]
  16. Andrographis [Concomitant]
  17. AMINO ACIDS [Concomitant]
     Active Substance: AMINO ACIDS
  18. Black Walnut Extract [Concomitant]
  19. DANDELION EXTRACT [Concomitant]
     Active Substance: TARAXACUM OFFICINALE ROOT
  20. Pau D Armco Extract [Concomitant]
  21. ASTRAGALUS EXTRACT [Concomitant]

REACTIONS (12)
  - Chest pain [None]
  - Neck pain [None]
  - Pain in jaw [None]
  - Weight decreased [None]
  - Decreased appetite [None]
  - Chills [None]
  - Dizziness [None]
  - Fatigue [None]
  - Lethargy [None]
  - Peripheral swelling [None]
  - Pruritus [None]
  - Paraesthesia [None]

NARRATIVE: CASE EVENT DATE: 20200601
